FAERS Safety Report 11788992 (Version 3)
Quarter: 2015Q4

REPORT INFORMATION
  Report Type: Spontaneous
  Country: BG (occurrence: BG)
  Receive Date: 20151201
  Receipt Date: 20151215
  Transmission Date: 20160305
  Serious: Yes (Death, Hospitalization)
  Sender: FDA-Public Use
  Company Number: PHHY2015BG154762

PATIENT
  Age: 37 Year
  Sex: Female
  Weight: 50 kg

DRUGS (3)
  1. INSULIN [Concomitant]
     Active Substance: INSULIN NOS
     Indication: DIABETES MELLITUS
     Dosage: 20 IU, QD
     Route: 065
     Dates: start: 2005, end: 2015
  2. CALCIUM [Concomitant]
     Active Substance: CALCIUM
     Indication: OSTEOPOROSIS
     Dosage: 600 MG, QD
     Route: 048
     Dates: start: 2008, end: 2015
  3. EXJADE [Suspect]
     Active Substance: DEFERASIROX
     Indication: THALASSAEMIA BETA
     Dosage: 20 MG/KG, QD
     Route: 048
     Dates: start: 20101101

REACTIONS (4)
  - Cardiac failure [Fatal]
  - Hepatic cirrhosis [Fatal]
  - Hepatic failure [Unknown]
  - Respiratory failure [Fatal]

NARRATIVE: CASE EVENT DATE: 20151102
